FAERS Safety Report 6249702-5 (Version None)
Quarter: 2009Q2

REPORT INFORMATION
  Report Type: 
  Country: None (occurrence: None)
  Receive Date: 20090625
  Receipt Date: 20090625
  Transmission Date: 20091009
  Serious: Yes (Life-Threatening, Other)
  Sender: FDA-Public Use
  Company Number: None

PATIENT
  Age: 58 Year
  Sex: Male
  Weight: 82.5547 kg

DRUGS (1)
  1. CRESTOR [Suspect]
     Indication: BLOOD CHOLESTEROL INCREASED
     Dosage: 5MG ONCE A DAY PO
     Route: 048
     Dates: start: 20090501, end: 20090523

REACTIONS (3)
  - GAIT DISTURBANCE [None]
  - MUSCLE DISORDER [None]
  - SPEECH DISORDER [None]
